FAERS Safety Report 6354485-4 (Version None)
Quarter: 2009Q3

REPORT INFORMATION
  Report Type: 
  Country: None (occurrence: None)
  Receive Date: 20090914
  Receipt Date: 20090117
  Transmission Date: 20100115
  Serious: Yes (Other)
  Sender: FDA-Public Use
  Company Number: PHEH2009US10739

PATIENT
  Sex: Female

DRUGS (3)
  1. LAMISIL [Suspect]
     Dosage: UNK, UNK
     Route: 065
  2. ASCORBIC ACID [Concomitant]
     Indication: HIP SURGERY
     Dosage: UNK, DAILY
  3. FERROUS SULFATE TAB [Concomitant]
     Indication: HIP SURGERY
     Dosage: 325 MG, UNK

REACTIONS (1)
  - HIP SURGERY [None]
